FAERS Safety Report 9877088 (Version 3)
Quarter: 2014Q4

REPORT INFORMATION
  Report Type: Spontaneous
  Country: US (occurrence: US)
  Receive Date: 20140206
  Receipt Date: 20141021
  Transmission Date: 20150529
  Serious: Yes (Hospitalization, Other)
  Sender: FDA-Public Use
  Company Number: US-009507513-1402USA001324

PATIENT
  Sex: Female

DRUGS (1)
  1. NUVARING [Suspect]
     Active Substance: ETHINYL ESTRADIOL\ETONOGESTREL
     Indication: CONTRACEPTION
     Dosage: UNK
     Route: 067
     Dates: start: 20021028, end: 20030610

REACTIONS (9)
  - Pulmonary embolism [Unknown]
  - Unintended pregnancy [Unknown]
  - Loop electrosurgical excision procedure [Unknown]
  - Pleurisy [Unknown]
  - Cervix carcinoma [Unknown]
  - Haemorrhage [Unknown]
  - Depression [Unknown]
  - Seizure [Unknown]
  - Pulmonary mass [Unknown]

NARRATIVE: CASE EVENT DATE: 20050815
